FAERS Safety Report 8219851-0 (Version None)
Quarter: 2012Q1

REPORT INFORMATION
  Report Type: 
  Country: None (occurrence: None)
  Receive Date: 20120319
  Receipt Date: 20120313
  Transmission Date: 20120608
  Serious: Yes (Life-Threatening, Other)
  Sender: FDA-Public Use
  Company Number: US-ASTRAZENECA-2012SE17185

PATIENT
  Age: 14 Year
  Sex: Male
  Weight: 90.7 kg

DRUGS (2)
  1. SEROQUEL [Suspect]
     Dosage: MORE THAN TWICE A DAY
     Route: 048
  2. SEROQUEL [Suspect]
     Indication: DEPRESSION
     Dosage: ONCE HE WAS GIVEN 150 MG THEN 350 MG AND 400 MG
     Route: 048

REACTIONS (3)
  - BLOOD GLUCOSE INCREASED [None]
  - OFF LABEL USE [None]
  - SUICIDE ATTEMPT [None]
